FAERS Safety Report 4345645-2 (Version None)
Quarter: 2004Q2

REPORT INFORMATION
  Report Type: 
  Country: None (occurrence: None)
  Receive Date: 20040421
  Receipt Date: 20040409
  Transmission Date: 20050107
  Serious: Yes (Other)
  Sender: FDA-Public Use
  Company Number: US-JNJFOC-20040402146

PATIENT
  Age: 64 Year
  Sex: Female
  Weight: 68.9467 kg

DRUGS (2)
  1. REMICADE [Suspect]
     Indication: CROHN'S DISEASE
     Dosage: 400 MG, 3 IN, INTRAVENOUS
     Route: 042
     Dates: start: 20040201
  2. PENTASA [Concomitant]

REACTIONS (2)
  - ASTHENIA [None]
  - MYALGIA [None]
